FAERS Safety Report 5630220-X (Version None)
Quarter: 2008Q1

REPORT INFORMATION
  Report Type: 
  Country: None (occurrence: None)
  Receive Date: 20080219
  Receipt Date: 20080212
  Transmission Date: 20080703
  Serious: Yes (Other)
  Sender: FDA-Public Use
  Company Number: US-ELI_LILLY_AND_COMPANY-US200802003053

PATIENT
  Sex: Male

DRUGS (1)
  1. ZYPREXA [Suspect]
     Dates: start: 20060215

REACTIONS (5)
  - DIABETES MELLITUS [None]
  - ERECTILE DYSFUNCTION [None]
  - LIBIDO DECREASED [None]
  - MALAISE [None]
  - PULMONARY EMBOLISM [None]
